FAERS Safety Report 10037690 (Version 1)
Quarter: 2014Q1

REPORT INFORMATION
  Report Type: Spontaneous
  Country: US (occurrence: None)
  Receive Date: 20140325
  Receipt Date: 20140325
  Transmission Date: 20141002
  Serious: Yes (Other)
  Sender: FDA-Public Use
  Company Number: None

PATIENT
  Age: 46 Year
  Sex: Female
  Weight: 60.33 kg

DRUGS (4)
  1. TEGRETOL [Suspect]
     Dosage: 600 MG (3 TABS)  BID  ORAL
     Route: 048
     Dates: start: 20140309, end: 20140314
  2. LEVEMIR [Concomitant]
  3. METFORMIN [Concomitant]
  4. RISPERDAL [Concomitant]

REACTIONS (1)
  - Vision blurred [None]
